FAERS Safety Report 13590941 (Version 2)
Quarter: 2017Q3

REPORT INFORMATION
  Report Type: Spontaneous
  Country: JP (occurrence: JP)
  Receive Date: 20170530
  Receipt Date: 20170918
  Transmission Date: 20171127
  Serious: Yes (Other)
  Sender: FDA-Public Use
  Company Number: JP-009507513-1703JPN002835J

PATIENT
  Age: 81 Year
  Sex: Male
  Weight: 62 kg

DRUGS (5)
  1. E KEPPRA [Concomitant]
     Active Substance: LEVETIRACETAM
     Dosage: UNK
     Route: 065
  2. PITAVASTATIN CALCIUM [Concomitant]
     Active Substance: PITAVASTATIN CALCIUM
     Dosage: UNK
     Route: 065
  3. TAKECAB [Concomitant]
     Active Substance: VONOPRAZAN FUMURATE
     Dosage: UNK
     Route: 065
  4. KEYTRUDA [Suspect]
     Active Substance: PEMBROLIZUMAB
     Indication: NON-SMALL CELL LUNG CANCER
     Dosage: 200 MG, Q3W
     Route: 041
     Dates: start: 20170306
  5. CANDESARTAN. [Concomitant]
     Active Substance: CANDESARTAN
     Route: 065

REACTIONS (1)
  - Tumour haemorrhage [Unknown]

NARRATIVE: CASE EVENT DATE: 20170307
